FAERS Safety Report 5615444-X (Version None)
Quarter: 2008Q1

REPORT INFORMATION
  Report Type: 
  Country: None (occurrence: None)
  Receive Date: 20080206
  Receipt Date: 20080131
  Transmission Date: 20080703
  Serious: Yes (Hospitalization)
  Sender: FDA-Public Use
  Company Number: ES-ASTRAZENECA-2008AC00336

PATIENT
  Age: 36 Year
  Sex: Female

DRUGS (7)
  1. ZOMIG [Suspect]
     Indication: MIGRAINE
     Dosage: 1 APPLICATION
     Route: 045
     Dates: start: 20071204, end: 20071204
  2. CIPROFLOXACIN [Concomitant]
     Indication: ANTIBIOTIC PROPHYLAXIS
     Route: 042
     Dates: start: 20071201, end: 20071204
  3. ZANTAC [Concomitant]
     Indication: ILL-DEFINED DISORDER
     Route: 042
     Dates: start: 20071201, end: 20071217
  4. GENTAMICIN [Concomitant]
     Indication: ANTIBIOTIC PROPHYLAXIS
     Dosage: 160/24H
     Route: 042
     Dates: start: 20071201, end: 20071215
  5. METOCLOPRAMIDE [Concomitant]
     Indication: NAUSEA
     Route: 042
     Dates: start: 20071201
  6. 1/2 DOLANTINA [Concomitant]
     Indication: PAIN
     Dosage: IV/SQ
     Dates: start: 20071201
  7. ENANTYUM [Concomitant]
     Indication: PAIN
     Dosage: 1 VIAL
     Route: 042
     Dates: start: 20071204, end: 20071215

REACTIONS (4)
  - CHEST PAIN [None]
  - DYSPNOEA [None]
  - ILL-DEFINED DISORDER [None]
  - RESPIRATORY FAILURE [None]
